FAERS Safety Report 8321788-3 (Version None)
Quarter: 2012Q2

REPORT INFORMATION
  Report Type: 
  Country: None (occurrence: None)
  Receive Date: 20120426
  Receipt Date: 20120416
  Transmission Date: 20120825
  Serious: Yes (Life-Threatening)
  Sender: FDA-Public Use
  Company Number: 2012MA005216

PATIENT
  Age: 79 Year
  Sex: Male

DRUGS (2)
  1. WARFARIN SODIUM [Concomitant]
  2. TRAMADOL HYDROCHLORIDE [Suspect]

REACTIONS (5)
  - LACERATION [None]
  - SUICIDE ATTEMPT [None]
  - FEELING GUILTY [None]
  - HAEMORRHAGE [None]
  - HALLUCINATION [None]
